FAERS Safety Report 4887764-8 (Version None)
Quarter: 2005Q4

REPORT INFORMATION
  Report Type: 
  Country: None (occurrence: None)
  Receive Date: 20051221
  Receipt Date: 20051028
  Transmission Date: 20060501
  Serious: No
  Sender: FDA-Public Use
  Company Number: US-YAMANOUCHI-YPA20050417

PATIENT
  Sex: Female

DRUGS (9)
  1. VESICARE [Suspect]
     Indication: BLADDER DISORDER
     Dosage: 5 MG PO
     Route: 048
     Dates: start: 20050501, end: 20050101
  2. VESICARE [Suspect]
     Indication: UTERINE PROLAPSE
     Dosage: 5 MG PO
     Route: 048
     Dates: start: 20050501, end: 20050101
  3. VESICARE [Suspect]
     Indication: BLADDER DISORDER
     Dosage: 10 MG DAILY
     Dates: start: 20050101
  4. VESICARE [Suspect]
     Indication: UTERINE PROLAPSE
     Dosage: 10 MG DAILY
     Dates: start: 20050101
  5. VITAMINS [Concomitant]
  6. ACTOS [Concomitant]
  7. BLOOD PRESSURE MDECIATION [Concomitant]
  8. LESCOL [Concomitant]
  9. DIURETIC [Concomitant]

REACTIONS (2)
  - BACK PAIN [None]
  - DRUG INEFFECTIVE [None]
